FAERS Safety Report 8838250 (Version 1)
Quarter: 2012Q4

REPORT INFORMATION
  Report Type: 
  Country: US (occurrence: US)
  Receive Date: 20121012
  Receipt Date: 20121012
  Transmission Date: 20130627
  Serious: No
  Sender: FDA-Public Use
  Company Number: US-ROCHE-GNE286095

PATIENT
  Sex: Female

DRUGS (2)
  1. NUTROPIN [Suspect]
     Indication: BODY HEIGHT BELOW NORMAL
     Dosage: UNK
     Route: 058
     Dates: start: 19981220, end: 20090110
  2. NUTROPIN [Suspect]
     Indication: TURNER^S SYNDROME

REACTIONS (2)
  - Tooth resorption [Unknown]
  - Abdominal pain upper [Unknown]
